FAERS Safety Report 15622776 (Version 2)
Quarter: 2018Q4

REPORT INFORMATION
  Report Type: Report from Study
  Country: DE (occurrence: DE)
  Receive Date: 20181115
  Receipt Date: 20181125
  Transmission Date: 20190205
  Serious: Yes (Life-Threatening, Hospitalization, Other)
  Sender: FDA-Public Use
  Company Number: DE-BRISTOL-MYERS SQUIBB COMPANY-BMS-2018-106208

PATIENT
  Age: 97 Year
  Sex: Female
  Weight: 72 kg

DRUGS (10)
  1. NOVALGIN (METAMIZOLE SODIUM) [Concomitant]
     Active Substance: METAMIZOLE SODIUM
     Indication: PAIN
     Dosage: 20.0 OTHER, PRN
     Route: 048
     Dates: start: 201805
  2. MACROGOL [Concomitant]
     Active Substance: POLYETHYLENE GLYCOLS
     Indication: CONSTIPATION
     Dosage: 1.0 OTHER, UNK
     Route: 048
     Dates: start: 201808
  3. TORASEMID [Concomitant]
     Active Substance: TORSEMIDE
     Indication: CARDIAC FAILURE CONGESTIVE
     Dosage: 5.0 MG, UNK
     Route: 048
     Dates: start: 201808
  4. BUDESONID [Concomitant]
     Active Substance: BUDESONIDE
     Indication: ASTHMA
     Dosage: 0.2 MG, UNK
     Route: 048
     Dates: start: 201804
  5. APIXABAN [Suspect]
     Active Substance: APIXABAN
     Indication: PRODUCT USED FOR UNKNOWN INDICATION
     Dosage: 5 MG, UNK
     Route: 048
     Dates: start: 20180921
  6. BISOPROLOL [Concomitant]
     Active Substance: BISOPROLOL
     Indication: CARDIAC FAILURE CONGESTIVE
     Dosage: 5.0 MG, UNK
     Route: 048
  7. AMLODIPIN                          /00972401/ [Concomitant]
     Active Substance: AMLODIPINE BESYLATE
     Indication: HYPERTENSION
     Dosage: 10.0 MG, UNK
     Route: 048
     Dates: start: 201804
  8. OLMESARTAN [Concomitant]
     Active Substance: OLMESARTAN
     Indication: HYPERTENSION
     Dosage: 40.0 MG, UNK
     Route: 048
     Dates: start: 201805
  9. MELPERON [Concomitant]
     Active Substance: MELPERONE
     Indication: CONFUSIONAL STATE
     Dosage: 2.5 OTHER, UNK
     Route: 048
     Dates: start: 2018
  10. ZOPICLON [Concomitant]
     Active Substance: ZOPICLONE
     Indication: SLEEP DISORDER
     Dosage: 3.75 MG, UNK
     Route: 048
     Dates: start: 2018

REACTIONS (4)
  - Metastatic neoplasm [Not Recovered/Not Resolved]
  - Cardiac failure [Recovering/Resolving]
  - Thrombosis [Unknown]
  - Weight increased [Unknown]

NARRATIVE: CASE EVENT DATE: 20181105
